FAERS Safety Report 13600997 (Version 1)
Quarter: 2017Q2

REPORT INFORMATION
  Report Type: Spontaneous
  Country: US (occurrence: US)
  Receive Date: 20170601
  Receipt Date: 20170601
  Transmission Date: 20170830
  Serious: Yes (Hospitalization)
  Sender: FDA-Public Use
  Company Number: None

PATIENT
  Age: 50 Year
  Sex: Female
  Weight: 63.9 kg

DRUGS (5)
  1. METHOCARBAMOL GENERIC ROBAXIN [Suspect]
     Active Substance: METHOCARBAMOL
     Indication: NERVE COMPRESSION
     Dosage: ?          QUANTITY:2 TABLET(S);?
     Route: 048
  2. ASPIRIN. [Concomitant]
     Active Substance: ASPIRIN
  3. VALACYCLAVIR [Concomitant]
  4. FERROUS SULFATE. [Concomitant]
     Active Substance: FERROUS SULFATE
  5. ESAMEPRAZONE [Concomitant]

REACTIONS (12)
  - Vertigo [None]
  - Hemiparesis [None]
  - Pain [None]
  - Paraesthesia [None]
  - Impaired work ability [None]
  - Dizziness [None]
  - Therapy cessation [None]
  - Hypoaesthesia [None]
  - Feeling hot [None]
  - Hyperhidrosis [None]
  - Headache [None]
  - Eye disorder [None]

NARRATIVE: CASE EVENT DATE: 20170522
